FAERS Safety Report 7775892 (Version 2)
Quarter: 2012Q4

REPORT INFORMATION
  Report Type: Spontaneous
  Country: US (occurrence: None)
  Receive Date: 20110103
  Receipt Date: 20120905
  Transmission Date: 20130627
  Serious: Yes (Death)
  Sender: FDA-Public Use
  Company Number: 2010005568

PATIENT
  Age: 58 Year
  Sex: Male

DRUGS (2)
  1. TARCEVA [Suspect]
     Indication: LUNG NEOPLASM MALIGNANT
     Route: 048
  2. TARCEVA [Suspect]
     Indication: BRONCHIAL CARCINOMA
     Route: 048

REACTIONS (1)
  - Death [None]
